FAERS Safety Report 7284873-3 (Version None)
Quarter: 2011Q1

REPORT INFORMATION
  Report Type: 
  Country: None (occurrence: None)
  Receive Date: 20110204
  Receipt Date: 20110204
  Transmission Date: 20110831
  Serious: No
  Sender: FDA-Public Use
  Company Number: None

PATIENT
  Age: 53 Year
  Sex: Female

DRUGS (1)
  1. LAMICTAL [Suspect]
     Indication: BIPOLAR DISORDER
     Dosage: 25 MG ONCE DAILY/TWO WKS; 50 MG ONCE DAILY/TWO WKS
     Dates: start: 20101229, end: 20110125

REACTIONS (1)
  - ALOPECIA [None]
